FAERS Safety Report 4351309-1 (Version None)
Quarter: 2004Q2

REPORT INFORMATION
  Report Type: 
  Country: None (occurrence: None)
  Receive Date: 20040428
  Receipt Date: 20040416
  Transmission Date: 20050107
  Serious: Yes (Hospitalization)
  Sender: FDA-Public Use
  Company Number: US-JNJFOC-20030706232

PATIENT
  Age: 70 Year
  Sex: Male
  Weight: 58.9676 kg

DRUGS (25)
  1. REMICADE [Suspect]
     Indication: RHEUMATOID ARTHRITIS
     Dosage: 200 MG, INTRAVENOUS
     Route: 042
     Dates: start: 20030703
  2. PLAQUENIL [Concomitant]
  3. CELEBREX [Concomitant]
  4. METHOTREXATE [Concomitant]
  5. PREDNISONE [Concomitant]
  6. FOSAMAX [Suspect]
  7. MIRAPEX [Concomitant]
  8. CLONAZEPAM [Concomitant]
  9. ATENOLOL [Concomitant]
  10. QUESTRAN [Concomitant]
  11. FOLIC ACID [Concomitant]
  12. ASPIRIN [Concomitant]
  13. FERROUS GLUCONATE (FERROUS GLUCONATE) [Concomitant]
  14. NASALIDE [Concomitant]
  15. CALCIUM (CALCIUM) [Concomitant]
  16. VITAMIN C (ASCORBIC ACID) [Concomitant]
  17. VTAMIN D (ERGOCALCIFEROL) [Concomitant]
  18. VITAMIN E [Concomitant]
  19. HYDROCHLOROTHIAZIDE (HYDROCHOROTHIAZIDE) [Concomitant]
  20. FUROSEMIDE [Concomitant]
  21. SULFASALAZINE [Concomitant]
  22. ACIPHEX [Concomitant]
  23. OXYCODONE HCL [Concomitant]
  24. SOMA [Concomitant]
  25. DARVOCET [Concomitant]

REACTIONS (15)
  - ASTHENIA [None]
  - BLOOD GLUCOSE INCREASED [None]
  - CHRONIC OBSTRUCTIVE AIRWAYS DISEASE [None]
  - CONFUSIONAL STATE [None]
  - CONVULSION [None]
  - DIZZINESS [None]
  - DYSKINESIA [None]
  - HAEMATOCRIT DECREASED [None]
  - HAEMOGLOBIN DECREASED [None]
  - HYPOTONIA [None]
  - LYMPHOCYTE COUNT DECREASED [None]
  - NAUSEA [None]
  - NEUTROPHIL COUNT INCREASED [None]
  - NYSTAGMUS [None]
  - VOMITING [None]
